FAERS Safety Report 20340622 (Version 6)
Quarter: 2023Q2

REPORT INFORMATION
  Report Type: Report from Study
  Country: CA (occurrence: CA)
  Receive Date: 20220117
  Receipt Date: 20230616
  Transmission Date: 20230722
  Serious: Yes (Other)
  Sender: FDA-Public Use
  Company Number: CA-TAKEDA-2022TUS002190

PATIENT
  Age: 60 Year
  Sex: Male

DRUGS (6)
  1. VEDOLIZUMAB [Suspect]
     Active Substance: VEDOLIZUMAB
     Indication: Colitis ulcerative
     Dosage: 300 MILLIGRAM
     Route: 042
     Dates: start: 20200123
  2. VEDOLIZUMAB [Suspect]
     Active Substance: VEDOLIZUMAB
     Dosage: 300 MILLIGRAM
     Route: 042
  3. VEDOLIZUMAB [Suspect]
     Active Substance: VEDOLIZUMAB
     Dosage: 300 MILLIGRAM
     Route: 042
  4. VEDOLIZUMAB [Suspect]
     Active Substance: VEDOLIZUMAB
     Dosage: 300 MILLIGRAM
     Route: 042
  5. VEDOLIZUMAB [Suspect]
     Active Substance: VEDOLIZUMAB
     Dosage: 300 MILLIGRAM
     Route: 042
  6. PENTASA [Concomitant]
     Active Substance: MESALAMINE
     Dosage: UNK

REACTIONS (9)
  - Haematochezia [Unknown]
  - Therapeutic reaction time decreased [Unknown]
  - Haemorrhoidal haemorrhage [Unknown]
  - Anaemia [Unknown]
  - Weight increased [Unknown]
  - Abdominal pain [Recovered/Resolved]
  - Abdominal distension [Recovered/Resolved]
  - Constipation [Unknown]
  - Fatigue [Unknown]
